FAERS Safety Report 5476400-8 (Version None)
Quarter: 2007Q3

REPORT INFORMATION
  Report Type: 
  Country: None (occurrence: None)
  Receive Date: 20070904
  Receipt Date: 20070625
  Transmission Date: 20080115
  Serious: No
  Sender: FDA-Public Use
  Company Number: PHEH2007US09269

PATIENT
  Age: 66 Year
  Sex: Male
  Weight: 90.7 kg

DRUGS (1)
  1. ENABLEX [Suspect]
     Dosage: 7.5 MG, QD, ORAL
     Route: 048
     Dates: start: 20070502

REACTIONS (1)
  - INSOMNIA [None]
